FAERS Safety Report 13719145 (Version 1)
Quarter: 2017Q3

REPORT INFORMATION
  Report Type: Report from Study
  Country: BR (occurrence: BR)
  Receive Date: 20170705
  Receipt Date: 20170705
  Transmission Date: 20171127
  Serious: Yes (Other)
  Sender: FDA-Public Use
  Company Number: PHHY2017BR098501

PATIENT
  Sex: Female

DRUGS (1)
  1. COSENTYX [Suspect]
     Active Substance: SECUKINUMAB
     Indication: PSORIASIS
     Dosage: 2 DF, UNK
     Route: 065

REACTIONS (5)
  - Wound [Not Recovered/Not Resolved]
  - Pruritus [Unknown]
  - Gait inability [Unknown]
  - Psoriasis [Unknown]
  - Asthenia [Unknown]
